FAERS Safety Report 13397428 (Version 1)
Quarter: 2017Q2

REPORT INFORMATION
  Report Type: Spontaneous
  Country: DE (occurrence: DE)
  Receive Date: 20170403
  Receipt Date: 20170403
  Transmission Date: 20170830
  Serious: Yes (Other)
  Sender: FDA-Public Use
  Company Number: DE-BAXALTA-2017BLT001448

PATIENT
  Age: 1 Year
  Sex: Male

DRUGS (2)
  1. ADVATE [Suspect]
     Active Substance: ANTIHEMOPHILIC FACTOR, HUMAN RECOMBINANT
     Indication: IMMUNE TOLERANCE INDUCTION
     Dosage: 1500 IU, 1X A DAY
     Route: 042
     Dates: start: 20170324
  2. ADVATE [Suspect]
     Active Substance: ANTIHEMOPHILIC FACTOR, HUMAN RECOMBINANT
     Indication: HAEMOPHILIA A WITH ANTI FACTOR VIII
     Dosage: 500 IU, EVERY 48 HOURS
     Route: 042
     Dates: start: 20161004

REACTIONS (2)
  - Condition aggravated [Recovering/Resolving]
  - Factor VIII inhibition [Recovering/Resolving]

NARRATIVE: CASE EVENT DATE: 20170220
